FAERS Safety Report 18783211 (Version 1)
Quarter: 2021Q1

REPORT INFORMATION
  Report Type: Spontaneous
  Country: US (occurrence: US)
  Receive Date: 20210125
  Receipt Date: 20210125
  Transmission Date: 20210419
  Serious: Yes (Hospitalization)
  Sender: FDA-Public Use
  Company Number: US-UNIQUE PHARMACEUTICAL LABORATORIES, A DIV. OF JBCPL-2021UNI000004

PATIENT
  Age: 51 Year
  Sex: Female

DRUGS (5)
  1. OXYCODONE [Concomitant]
     Active Substance: OXYCODONE
     Indication: BACK PAIN
     Dosage: 5/325 MG 3 TIMES DAILY AS NEEDED
     Route: 065
  2. OXYCONTIN [Concomitant]
     Active Substance: OXYCODONE HYDROCHLORIDE
     Indication: BACK PAIN
     Dosage: 10 MILLIGRAM, BID
     Route: 065
  3. CIPROFLOXACIN. [Suspect]
     Active Substance: CIPROFLOXACIN
     Indication: DIVERTICULITIS
     Dosage: 500 MILLIGRAM, BID
     Route: 065
  4. TIZANIDINE. [Suspect]
     Active Substance: TIZANIDINE
     Indication: BACK PAIN
     Dosage: 4 MILLIGRAM, TID; AS NEEDED
     Route: 065
  5. METRONIDAZOLE. [Concomitant]
     Active Substance: METRONIDAZOLE
     Indication: DIVERTICULITIS
     Dosage: 500 MILLIGRAM, TID
     Route: 065

REACTIONS (7)
  - Headache [Unknown]
  - Renal impairment [Unknown]
  - Clostridium difficile infection [Unknown]
  - Dizziness [Unknown]
  - Drug interaction [Unknown]
  - Thrombocytopenia [Unknown]
  - Orthostatic hypotension [Unknown]
